FAERS Safety Report 4411755-4 (Version None)
Quarter: 2004Q2

REPORT INFORMATION
  Report Type: 
  Country: None (occurrence: None)
  Receive Date: 20040630
  Receipt Date: 20040330
  Transmission Date: 20050107
  Serious: No
  Sender: FDA-Public Use
  Company Number: 04P-163-0255268-00

PATIENT
  Age: 63 Year
  Sex: Female
  Weight: 76.2043 kg

DRUGS (7)
  1. HUMIRA [Suspect]
     Indication: RHEUMATOID ARTHRITIS
     Dosage: 40 MG, 1 IN 2 WK, SUBCUTANEOUS
     Route: 058
     Dates: start: 20030901
  2. MICARDIS HCT [Concomitant]
  3. GLIBOMET [Concomitant]
  4. ROSIGLITAZONE MALEATE [Concomitant]
  5. BUCINDOLOL HYDROCHLORIDE [Concomitant]
  6. ASPIRIN [Concomitant]
  7. PERINDOPRIL ERBUMINE [Concomitant]

REACTIONS (1)
  - MASS [None]
